FAERS Safety Report 15100921 (Version 1)
Quarter: 2018Q3

REPORT INFORMATION
  Report Type: Spontaneous
  Country: US (occurrence: US)
  Receive Date: 20180703
  Receipt Date: 20180703
  Transmission Date: 20181010
  Serious: No
  Sender: FDA-Public Use
  Company Number: US-PFIZER INC-2018266163

PATIENT

DRUGS (2)
  1. CENTRUM MULTIGUMMIES [Suspect]
     Active Substance: MINERALS\VITAMINS
     Dosage: UNK
  2. VITAMIN A [Suspect]
     Active Substance: VITAMIN A
     Dosage: UNK

REACTIONS (4)
  - Malaise [Unknown]
  - Vomiting [Unknown]
  - Contraindicated product administered [Unknown]
  - Gastrooesophageal reflux disease [Unknown]
